FAERS Safety Report 4408222-0 (Version None)
Quarter: 2004Q3

REPORT INFORMATION
  Report Type: 
  Country: None (occurrence: None)
  Receive Date: 20040722
  Receipt Date: 20040708
  Transmission Date: 20050211
  Serious: Yes (Other)
  Sender: FDA-Public Use
  Company Number: 2004223150DE

PATIENT
  Age: 59 Year
  Sex: Female
  Weight: 85 kg

DRUGS (3)
  1. FARMORUBICIN (EPIRUBICIN HYROCHLORIDE)SOLUTIN, STERILE [Suspect]
     Indication: BREAST CANCER FEMALE
     Dosage: 120 MG, CYCLIC, IV
     Route: 042
     Dates: start: 20040623, end: 20040630
  2. CYCLOPHOSPHAMIDE [Suspect]
     Indication: BREAST CANCER FEMALE
     Dosage: 150 MG, CYCLIC, ORAL
     Route: 048
     Dates: start: 20040623, end: 20040706
  3. COMPARATOR - FLUORURACIL (FLUOROURACIL) INJECTION [Suspect]
     Indication: BREAST CANCER FEMALE
     Dosage: 1000 MG, CYCLIC, IV
     Route: 042
     Dates: start: 20040623, end: 20040630

REACTIONS (5)
  - CARDIOVASCULAR DISORDER [None]
  - CIRCULATORY COLLAPSE [None]
  - DISEASE RECURRENCE [None]
  - NAUSEA [None]
  - VOMITING [None]
